FAERS Safety Report 24563297 (Version 2)
Quarter: 2025Q1

REPORT INFORMATION
  Report Type: Spontaneous
  Country: CA (occurrence: CA)
  Receive Date: 20241030
  Receipt Date: 20250128
  Transmission Date: 20250409
  Serious: Yes (Death, Life-Threatening, Hospitalization, Disabling, Congenital Anomaly, Other)
  Sender: Haleon PLC
  Company Number: CA-002147023-NVSC2023CA235723

PATIENT
  Age: 43 Year
  Sex: Female
  Weight: 68 kg

DRUGS (135)
  1. ACETAMINOPHEN [Suspect]
     Active Substance: ACETAMINOPHEN
     Indication: Rheumatoid arthritis
  2. ACETAMINOPHEN [Suspect]
     Active Substance: ACETAMINOPHEN
     Indication: Product used for unknown indication
  3. ACETAMINOPHEN [Suspect]
     Active Substance: ACETAMINOPHEN
     Route: 048
  4. ACETAMINOPHEN [Suspect]
     Active Substance: ACETAMINOPHEN
  5. ACETAMINOPHEN [Suspect]
     Active Substance: ACETAMINOPHEN
  6. CETIRIZINE HYDROCHLORIDE [Suspect]
     Active Substance: CETIRIZINE HYDROCHLORIDE
     Indication: Rheumatoid arthritis
     Route: 065
  7. CETIRIZINE HYDROCHLORIDE [Suspect]
     Active Substance: CETIRIZINE HYDROCHLORIDE
     Indication: Off label use
     Route: 065
  8. CETIRIZINE HYDROCHLORIDE [Suspect]
     Active Substance: CETIRIZINE HYDROCHLORIDE
     Indication: Product used for unknown indication
     Route: 065
  9. CETIRIZINE HYDROCHLORIDE [Suspect]
     Active Substance: CETIRIZINE HYDROCHLORIDE
     Route: 065
  10. CETIRIZINE HYDROCHLORIDE [Suspect]
     Active Substance: CETIRIZINE HYDROCHLORIDE
     Route: 065
  11. CETIRIZINE HYDROCHLORIDE [Suspect]
     Active Substance: CETIRIZINE HYDROCHLORIDE
     Route: 042
  12. CETIRIZINE HYDROCHLORIDE [Suspect]
     Active Substance: CETIRIZINE HYDROCHLORIDE
     Route: 065
  13. CETIRIZINE HYDROCHLORIDE [Suspect]
     Active Substance: CETIRIZINE HYDROCHLORIDE
     Route: 065
  14. CETIRIZINE HYDROCHLORIDE [Suspect]
     Active Substance: CETIRIZINE HYDROCHLORIDE
     Route: 065
  15. CETIRIZINE HYDROCHLORIDE [Suspect]
     Active Substance: CETIRIZINE HYDROCHLORIDE
     Route: 048
  16. CETIRIZINE HYDROCHLORIDE [Suspect]
     Active Substance: CETIRIZINE HYDROCHLORIDE
     Route: 042
  17. CETIRIZINE HYDROCHLORIDE [Suspect]
     Active Substance: CETIRIZINE HYDROCHLORIDE
     Route: 065
  18. CETIRIZINE HYDROCHLORIDE [Suspect]
     Active Substance: CETIRIZINE HYDROCHLORIDE
     Route: 065
  19. CETIRIZINE HYDROCHLORIDE [Suspect]
     Active Substance: CETIRIZINE HYDROCHLORIDE
     Route: 065
  20. CETIRIZINE HYDROCHLORIDE [Suspect]
     Active Substance: CETIRIZINE HYDROCHLORIDE
     Route: 048
  21. CETIRIZINE HYDROCHLORIDE [Suspect]
     Active Substance: CETIRIZINE HYDROCHLORIDE
     Route: 048
  22. CETIRIZINE HYDROCHLORIDE [Suspect]
     Active Substance: CETIRIZINE HYDROCHLORIDE
     Route: 065
  23. CETIRIZINE HYDROCHLORIDE [Suspect]
     Active Substance: CETIRIZINE HYDROCHLORIDE
     Route: 048
  24. CETIRIZINE HYDROCHLORIDE [Suspect]
     Active Substance: CETIRIZINE HYDROCHLORIDE
     Route: 065
  25. CETIRIZINE HYDROCHLORIDE [Suspect]
     Active Substance: CETIRIZINE HYDROCHLORIDE
     Route: 048
  26. CETIRIZINE HYDROCHLORIDE [Suspect]
     Active Substance: CETIRIZINE HYDROCHLORIDE
     Route: 048
  27. CETIRIZINE HYDROCHLORIDE [Suspect]
     Active Substance: CETIRIZINE HYDROCHLORIDE
     Route: 048
  28. CETIRIZINE HYDROCHLORIDE [Suspect]
     Active Substance: CETIRIZINE HYDROCHLORIDE
     Route: 065
  29. CETIRIZINE HYDROCHLORIDE [Suspect]
     Active Substance: CETIRIZINE HYDROCHLORIDE
     Route: 048
  30. CETIRIZINE HYDROCHLORIDE [Suspect]
     Active Substance: CETIRIZINE HYDROCHLORIDE
     Route: 048
  31. CETIRIZINE HYDROCHLORIDE [Suspect]
     Active Substance: CETIRIZINE HYDROCHLORIDE
     Route: 065
  32. CETIRIZINE HYDROCHLORIDE [Suspect]
     Active Substance: CETIRIZINE HYDROCHLORIDE
     Route: 048
  33. CETIRIZINE HYDROCHLORIDE [Suspect]
     Active Substance: CETIRIZINE HYDROCHLORIDE
     Route: 065
  34. CETIRIZINE HYDROCHLORIDE [Suspect]
     Active Substance: CETIRIZINE HYDROCHLORIDE
     Route: 065
  35. CETIRIZINE HYDROCHLORIDE [Suspect]
     Active Substance: CETIRIZINE HYDROCHLORIDE
     Route: 048
  36. CETIRIZINE HYDROCHLORIDE [Suspect]
     Active Substance: CETIRIZINE HYDROCHLORIDE
     Route: 048
  37. CETIRIZINE HYDROCHLORIDE [Suspect]
     Active Substance: CETIRIZINE HYDROCHLORIDE
     Route: 065
  38. CETIRIZINE HYDROCHLORIDE [Suspect]
     Active Substance: CETIRIZINE HYDROCHLORIDE
     Route: 065
  39. CETIRIZINE HYDROCHLORIDE [Suspect]
     Active Substance: CETIRIZINE HYDROCHLORIDE
     Route: 065
  40. ORENCIA [Suspect]
     Active Substance: ABATACEPT
     Indication: Rheumatoid arthritis
     Route: 015
  41. ORENCIA [Suspect]
     Active Substance: ABATACEPT
     Indication: Psoriatic arthropathy
     Route: 058
  42. ORENCIA [Suspect]
     Active Substance: ABATACEPT
     Indication: Product used for unknown indication
     Route: 042
  43. ORENCIA [Suspect]
     Active Substance: ABATACEPT
     Route: 065
  44. ORENCIA [Suspect]
     Active Substance: ABATACEPT
     Route: 042
  45. ORENCIA [Suspect]
     Active Substance: ABATACEPT
     Route: 065
  46. ORENCIA [Suspect]
     Active Substance: ABATACEPT
     Route: 058
  47. PIROXICAM [Suspect]
     Active Substance: PIROXICAM
     Indication: Product used for unknown indication
     Route: 065
  48. PREDNISONE [Suspect]
     Active Substance: PREDNISONE
     Indication: Rheumatoid arthritis
     Route: 048
  49. PREDNISONE [Suspect]
     Active Substance: PREDNISONE
     Indication: Product used for unknown indication
     Route: 042
  50. PREDNISONE [Suspect]
     Active Substance: PREDNISONE
     Indication: Condition aggravated
     Route: 065
  51. PREDNISONE [Suspect]
     Active Substance: PREDNISONE
     Indication: Product used for unknown indication
     Route: 048
  52. PREDNISONE [Suspect]
     Active Substance: PREDNISONE
     Route: 048
  53. PREDNISONE [Suspect]
     Active Substance: PREDNISONE
     Route: 065
  54. PREDNISONE [Suspect]
     Active Substance: PREDNISONE
     Route: 048
  55. PREDNISONE [Suspect]
     Active Substance: PREDNISONE
     Route: 065
  56. PREDNISONE [Suspect]
     Active Substance: PREDNISONE
     Route: 042
  57. PREDNISONE [Suspect]
     Active Substance: PREDNISONE
     Route: 048
  58. CETIRIZINE HYDROCHLORIDE [Suspect]
     Active Substance: CETIRIZINE HYDROCHLORIDE
     Indication: Rheumatoid arthritis
     Route: 065
  59. TRAMADOL HYDROCHLORIDE [Suspect]
     Active Substance: TRAMADOL HYDROCHLORIDE
     Indication: Product used for unknown indication
     Route: 065
  60. ACETAMINOPHEN AND CODEINE [Concomitant]
     Active Substance: ACETAMINOPHEN\CODEINE PHOSPHATE
     Indication: Product used for unknown indication
  61. RITUXIMAB [Suspect]
     Active Substance: RITUXIMAB
     Indication: Rheumatoid arthritis
  62. RITUXIMAB [Suspect]
     Active Substance: RITUXIMAB
     Indication: Product used for unknown indication
     Route: 043
  63. RITUXIMAB [Suspect]
     Active Substance: RITUXIMAB
     Route: 042
  64. RITUXIMAB [Suspect]
     Active Substance: RITUXIMAB
     Route: 042
  65. RITUXIMAB [Suspect]
     Active Substance: RITUXIMAB
     Route: 041
  66. RITUXIMAB [Suspect]
     Active Substance: RITUXIMAB
     Route: 065
  67. RITUXIMAB [Suspect]
     Active Substance: RITUXIMAB
     Route: 043
  68. RITUXIMAB [Suspect]
     Active Substance: RITUXIMAB
     Route: 042
  69. FOLIC ACID [Suspect]
     Active Substance: FOLIC ACID
     Indication: Rheumatoid arthritis
     Dosage: 25 MG, QD
     Route: 048
  70. FOLIC ACID [Suspect]
     Active Substance: FOLIC ACID
     Route: 065
  71. FOLIC ACID [Suspect]
     Active Substance: FOLIC ACID
     Route: 065
  72. FOLIC ACID [Suspect]
     Active Substance: FOLIC ACID
     Route: 065
  73. FOLIC ACID [Suspect]
     Active Substance: FOLIC ACID
     Dosage: 500 G, QD
     Route: 048
  74. FOLIC ACID [Suspect]
     Active Substance: FOLIC ACID
     Route: 065
  75. FOLIC ACID [Suspect]
     Active Substance: FOLIC ACID
     Route: 048
  76. FOLIC ACID [Suspect]
     Active Substance: FOLIC ACID
     Route: 065
  77. FOLIC ACID [Suspect]
     Active Substance: FOLIC ACID
     Route: 065
  78. FOLIC ACID [Suspect]
     Active Substance: FOLIC ACID
     Route: 048
  79. FOLIC ACID [Suspect]
     Active Substance: FOLIC ACID
     Route: 065
  80. FOLIC ACID [Suspect]
     Active Substance: FOLIC ACID
     Route: 048
  81. FOLIC ACID [Suspect]
     Active Substance: FOLIC ACID
  82. FOLIC ACID [Suspect]
     Active Substance: FOLIC ACID
  83. DICLOFENAC [Suspect]
     Active Substance: DICLOFENAC
     Indication: Product used for unknown indication
     Route: 065
  84. COSENTYX [Suspect]
     Active Substance: SECUKINUMAB
     Indication: Psoriatic arthropathy
     Dosage: 400 MG, QD
     Route: 065
  85. COSENTYX [Suspect]
     Active Substance: SECUKINUMAB
     Indication: Product used for unknown indication
     Route: 065
  86. COSENTYX [Suspect]
     Active Substance: SECUKINUMAB
     Dosage: 400 MG, QD
     Route: 065
  87. COSENTYX [Suspect]
     Active Substance: SECUKINUMAB
     Route: 065
  88. COSENTYX [Suspect]
     Active Substance: SECUKINUMAB
     Route: 065
  89. COSENTYX [Suspect]
     Active Substance: SECUKINUMAB
     Route: 065
  90. METHOTREXATE [Suspect]
     Active Substance: METHOTREXATE
     Indication: Psoriatic arthropathy
     Route: 048
  91. METHOTREXATE [Suspect]
     Active Substance: METHOTREXATE
     Indication: Rheumatoid arthritis
     Dosage: 25 MG, WE
     Route: 048
  92. METHOTREXATE [Suspect]
     Active Substance: METHOTREXATE
     Indication: Product used for unknown indication
     Dosage: 20 MG, QD
     Route: 048
  93. METHOTREXATE [Suspect]
     Active Substance: METHOTREXATE
     Dosage: 20 MG, WE
     Route: 048
  94. METHOTREXATE [Suspect]
     Active Substance: METHOTREXATE
     Route: 048
  95. METHOTREXATE [Suspect]
     Active Substance: METHOTREXATE
     Route: 065
  96. METHOTREXATE [Suspect]
     Active Substance: METHOTREXATE
     Dosage: UNK UNK, QD
     Route: 048
  97. METHOTREXATE [Suspect]
     Active Substance: METHOTREXATE
     Dosage: 20 MG, WE
     Route: 065
  98. METHOTREXATE [Suspect]
     Active Substance: METHOTREXATE
     Route: 048
  99. METHOTREXATE [Suspect]
     Active Substance: METHOTREXATE
     Dosage: UNK UNK, QD
     Route: 048
  100. METHOTREXATE [Suspect]
     Active Substance: METHOTREXATE
     Route: 058
  101. METHOTREXATE [Suspect]
     Active Substance: METHOTREXATE
     Route: 065
  102. METHOTREXATE [Suspect]
     Active Substance: METHOTREXATE
     Route: 065
  103. METHOTREXATE [Suspect]
     Active Substance: METHOTREXATE
     Dosage: 2 G, QD
     Route: 048
  104. METHOTREXATE [Suspect]
     Active Substance: METHOTREXATE
     Route: 065
  105. METHOTREXATE [Suspect]
     Active Substance: METHOTREXATE
     Dosage: UNK UNK, QD
     Route: 065
  106. METHOTREXATE [Suspect]
     Active Substance: METHOTREXATE
     Dosage: 20 MG, QD
     Route: 065
  107. METHOTREXATE [Suspect]
     Active Substance: METHOTREXATE
     Dosage: 20 MG, WE
     Route: 065
  108. METHOTREXATE [Suspect]
     Active Substance: METHOTREXATE
     Route: 013
  109. METHOTREXATE [Suspect]
     Active Substance: METHOTREXATE
     Route: 058
  110. METHOTREXATE [Suspect]
     Active Substance: METHOTREXATE
     Route: 065
  111. METHOTREXATE [Suspect]
     Active Substance: METHOTREXATE
     Route: 013
  112. METHOTREXATE [Suspect]
     Active Substance: METHOTREXATE
     Route: 065
  113. METHOTREXATE [Suspect]
     Active Substance: METHOTREXATE
     Dosage: 25 MG, WE
     Route: 013
  114. METHOTREXATE [Suspect]
     Active Substance: METHOTREXATE
     Dosage: 25 MG, WE
     Route: 048
  115. LEFLUNOMIDE [Suspect]
     Active Substance: LEFLUNOMIDE
     Indication: Rheumatoid arthritis
     Route: 065
  116. LEFLUNOMIDE [Suspect]
     Active Substance: LEFLUNOMIDE
     Route: 048
  117. LEFLUNOMIDE [Suspect]
     Active Substance: LEFLUNOMIDE
     Dosage: 1 DF, QD
     Route: 048
  118. LEFLUNOMIDE [Suspect]
     Active Substance: LEFLUNOMIDE
     Route: 065
  119. ALENDRONATE SODIUM [Suspect]
     Active Substance: ALENDRONATE SODIUM
     Indication: Rheumatoid arthritis
     Route: 065
  120. ALENDRONATE SODIUM [Suspect]
     Active Substance: ALENDRONATE SODIUM
     Route: 048
  121. ADALIMUMAB [Suspect]
     Active Substance: ADALIMUMAB
     Indication: Rheumatoid arthritis
     Route: 058
  122. ADALIMUMAB [Suspect]
     Active Substance: ADALIMUMAB
     Route: 058
  123. ADALIMUMAB [Suspect]
     Active Substance: ADALIMUMAB
     Route: 058
  124. MYCOPHENOLATE MOFETIL [Suspect]
     Active Substance: MYCOPHENOLATE MOFETIL
     Indication: Product used for unknown indication
     Route: 065
  125. ERELZI [Suspect]
     Active Substance: ETANERCEPT-SZZS
     Indication: Rheumatoid arthritis
     Route: 058
  126. ERELZI [Suspect]
     Active Substance: ETANERCEPT-SZZS
     Route: 058
  127. ERELZI [Suspect]
     Active Substance: ETANERCEPT-SZZS
     Route: 048
  128. ERELZI [Suspect]
     Active Substance: ETANERCEPT-SZZS
     Route: 065
  129. DICLOFENAC SODIUM [Suspect]
     Active Substance: DICLOFENAC SODIUM
     Indication: Product used for unknown indication
     Route: 065
  130. DICLOFENAC SODIUM [Suspect]
     Active Substance: DICLOFENAC SODIUM
     Route: 047
  131. DICLOFENAC SODIUM [Suspect]
     Active Substance: DICLOFENAC SODIUM
     Route: 065
  132. DICLOFENAC SODIUM [Suspect]
     Active Substance: DICLOFENAC SODIUM
     Route: 047
  133. DICLOFENAC SODIUM [Suspect]
     Active Substance: DICLOFENAC SODIUM
     Route: 065
  134. COSENTYX [Concomitant]
     Active Substance: SECUKINUMAB
     Indication: Product used for unknown indication
  135. ACETAMINOPHEN\OXYCODONE HYDROCHLORIDE [Suspect]
     Active Substance: ACETAMINOPHEN\OXYCODONE HYDROCHLORIDE
     Indication: Product used for unknown indication
     Route: 065

REACTIONS (80)
  - Pancreatitis [Fatal]
  - Wound [Fatal]
  - Obesity [Fatal]
  - Vomiting [Fatal]
  - Lung disorder [Fatal]
  - Breast cancer stage III [Fatal]
  - Fibromyalgia [Fatal]
  - White blood cell count increased [Fatal]
  - Synovitis [Fatal]
  - Asthenia [Fatal]
  - Mobility decreased [Fatal]
  - Road traffic accident [Fatal]
  - Systemic lupus erythematosus [Fatal]
  - Wound infection [Fatal]
  - Off label use [Fatal]
  - Chest pain [Fatal]
  - Rash [Fatal]
  - Pain in extremity [Fatal]
  - Weight increased [Fatal]
  - Intentional product misuse [Fatal]
  - Wheezing [Fatal]
  - Abdominal pain upper [Fatal]
  - Weight decreased [Fatal]
  - Anti-cyclic citrullinated peptide antibody positive [Fatal]
  - Pericarditis [Fatal]
  - Decreased appetite [Fatal]
  - Psoriatic arthropathy [Fatal]
  - Peripheral venous disease [Fatal]
  - Rheumatoid factor positive [Fatal]
  - Discomfort [Fatal]
  - Rheumatoid arthritis [Fatal]
  - Fatigue [Fatal]
  - Drug hypersensitivity [Fatal]
  - Muscular weakness [Fatal]
  - Swelling [Fatal]
  - Adverse drug reaction [Fatal]
  - Bursitis [Fatal]
  - Muscle spasms [Fatal]
  - Dry mouth [Fatal]
  - Blister [Fatal]
  - Liver disorder [Fatal]
  - Rectal haemorrhage [Fatal]
  - Confusional state [Fatal]
  - Adjustment disorder with depressed mood [Fatal]
  - Dislocation of vertebra [Fatal]
  - Delirium [Fatal]
  - Inflammation [Fatal]
  - Arthropathy [Fatal]
  - Colitis ulcerative [Fatal]
  - Dizziness [Fatal]
  - Blood cholesterol increased [Fatal]
  - Irritable bowel syndrome [Fatal]
  - Amnesia [Fatal]
  - Abdominal pain [Fatal]
  - Duodenal ulcer perforation [Fatal]
  - Oedema peripheral [Fatal]
  - Feeling hot [Fatal]
  - Memory impairment [Fatal]
  - Porphyria acute [Fatal]
  - Night sweats [Fatal]
  - Musculoskeletal pain [Fatal]
  - Paraesthesia [Fatal]
  - Underdose [Fatal]
  - Diarrhoea [Fatal]
  - Joint range of motion decreased [Fatal]
  - Frequent bowel movements [Fatal]
  - Sciatica [Fatal]
  - Therapy non-responder [Fatal]
  - Laboratory test abnormal [Fatal]
  - Arthralgia [Fatal]
  - Osteoarthritis [Fatal]
  - Depression [Fatal]
  - Gait disturbance [Fatal]
  - Abdominal discomfort [Fatal]
  - Alopecia [Fatal]
  - Condition aggravated [Fatal]
  - Adverse event [Fatal]
  - C-reactive protein abnormal [Fatal]
  - Grip strength decreased [Fatal]
  - Lip dry [Fatal]
